FAERS Safety Report 11878512 (Version 1)
Quarter: 2015Q4

REPORT INFORMATION
  Report Type: Spontaneous
  Country: US (occurrence: US)
  Receive Date: 20151230
  Receipt Date: 20151230
  Transmission Date: 20160305
  Serious: Yes (Hospitalization, Other)
  Sender: FDA-Public Use
  Company Number: US-BAYER-2015-495817

PATIENT
  Age: 20 Year
  Sex: Female
  Weight: 89.8 kg

DRUGS (1)
  1. MIRENA [Suspect]
     Active Substance: LEVONORGESTREL
     Indication: CONTRACEPTION
     Dosage: 20 MCG/24HR, CONT
     Route: 015
     Dates: start: 20100325, end: 20140107

REACTIONS (9)
  - Pelvic pain [Not Recovered/Not Resolved]
  - Device issue [None]
  - Ovarian cyst [Not Recovered/Not Resolved]
  - Habitual abortion [None]
  - Device dislocation [Not Recovered/Not Resolved]
  - Maternal exposure before pregnancy [None]
  - Anxiety [None]
  - Urinary tract infection [Not Recovered/Not Resolved]
  - Depression [None]

NARRATIVE: CASE EVENT DATE: 20100325
